FAERS Safety Report 25874499 (Version 5)
Quarter: 2025Q4

REPORT INFORMATION
  Report Type: Spontaneous
  Country: US (occurrence: US)
  Receive Date: 20251002
  Receipt Date: 20251121
  Transmission Date: 20260117
  Serious: No
  Sender: PFIZER
  Company Number: US-PFIZER INC-202500193982

PATIENT
  Age: 70 Year
  Sex: Male
  Weight: 83.91 kg

DRUGS (2)
  1. CAVERJECT IMPULSE [Suspect]
     Active Substance: ALPROSTADIL
     Indication: Erectile dysfunction
     Dosage: UNK
  2. CAVERJECT IMPULSE [Suspect]
     Active Substance: ALPROSTADIL
     Dosage: 2.5 MG, AS NEEDED
     Dates: start: 202501

REACTIONS (3)
  - Drug ineffective [Unknown]
  - Incorrect dose administered by product [Unknown]
  - Device mechanical issue [Unknown]
